FAERS Safety Report 22635674 (Version 1)
Quarter: 2023Q2

REPORT INFORMATION
  Report Type: Spontaneous
  Country: US (occurrence: None)
  Receive Date: 20230620
  Receipt Date: 20230620
  Transmission Date: 20230721
  Serious: Yes (Death)
  Sender: FDA-Public Use
  Company Number: None

PATIENT
  Sex: Female

DRUGS (1)
  1. RETACRIT [Suspect]
     Active Substance: EPOETIN ALFA-EPBX
     Indication: Myelodysplastic syndrome
     Dosage: OTHER STRENGTH : 40,000 UNITS/ML;?OTHER QUANTITY : 60000;?FREQUENCY : WEEKLY;?
     Route: 058

REACTIONS (1)
  - Death [None]
